FAERS Safety Report 4394155-5 (Version None)
Quarter: 2004Q3

REPORT INFORMATION
  Report Type: 
  Country: None (occurrence: None)
  Receive Date: 20040706
  Receipt Date: 20040629
  Transmission Date: 20050211
  Serious: Yes (Hospitalization)
  Sender: FDA-Public Use
  Company Number: US-JNJFOC-20040608279

PATIENT
  Age: 25 Year
  Sex: Male

DRUGS (2)
  1. MOTRIN [Suspect]
     Dosage: 800 MG, 3 IN 1 DAY, ORAL
     Route: 048
  2. SMALL POX VACCINE (ALL OTHER THERAPEUTIC PRODUCTS) [Suspect]
     Dates: start: 20030401

REACTIONS (3)
  - ENCEPHALOPATHY [None]
  - HALLUCINATION [None]
  - MYOCARDITIS [None]
